FAERS Safety Report 8844724 (Version 1)
Quarter: 2012Q4

REPORT INFORMATION
  Report Type: 
  Country: US (occurrence: US)
  Receive Date: 20121017
  Receipt Date: 20121017
  Transmission Date: 20130627
  Serious: No
  Sender: FDA-Public Use
  Company Number: US-PFIZER INC-2012255078

PATIENT
  Age: 35 Year
  Sex: Female
  Weight: 69 kg

DRUGS (1)
  1. HYDROCORTISONE ACETATE [Suspect]
     Indication: HAEMORRHOIDS
     Dosage: UNK
     Dates: end: 201210

REACTIONS (1)
  - Drug ineffective [Unknown]
